FAERS Safety Report 9866028 (Version 2)
Quarter: 2014Q1

REPORT INFORMATION
  Report Type: Spontaneous
  Country: US (occurrence: US)
  Receive Date: 20140203
  Receipt Date: 20140203
  Transmission Date: 20141002
  Serious: No
  Sender: FDA-Public Use
  Company Number: US-ALLERGAN-1315237US

PATIENT
  Sex: Female

DRUGS (4)
  1. RESTASIS [Suspect]
     Indication: DRY EYE
     Dosage: 2 GTT, UNK
     Route: 047
     Dates: start: 201305
  2. TIMOLOL MALEATE [Concomitant]
     Indication: GLAUCOMA
     Dosage: 2 GTT, BID
     Route: 047
     Dates: start: 2010, end: 201307
  3. GENTEAL                            /00445101/ [Concomitant]
     Indication: EYE LUBRICATION THERAPY
     Dosage: 2 GTT, UNK
     Route: 047
     Dates: start: 2010
  4. BLINK                              /00582501/ [Concomitant]
     Dosage: 2 GTT, UNK
     Route: 047
     Dates: start: 2010

REACTIONS (9)
  - Fatigue [Unknown]
  - Fear [Unknown]
  - Wrong technique in drug usage process [Unknown]
  - Lacrimation decreased [Unknown]
  - Rash [Unknown]
  - Eye irritation [Unknown]
  - Instillation site pain [Recovered/Resolved]
  - Dry eye [Not Recovered/Not Resolved]
  - Eye pain [Recovering/Resolving]
